FAERS Safety Report 25598255 (Version 4)
Quarter: 2025Q3

REPORT INFORMATION
  Report Type: Spontaneous
  Country: AR (occurrence: AR)
  Receive Date: 20250723
  Receipt Date: 20250827
  Transmission Date: 20251020
  Serious: No
  Sender: PFIZER
  Company Number: AR-PFIZER INC-202500135872

PATIENT
  Age: 8 Year
  Sex: Male

DRUGS (2)
  1. GENOTROPIN [Suspect]
     Active Substance: SOMATROPIN
     Indication: Growth hormone deficiency
     Dosage: 1 MG, 1X/DAY
     Dates: start: 20221203, end: 20250702
  2. GENOTROPIN [Suspect]
     Active Substance: SOMATROPIN
     Dates: start: 20221203

REACTIONS (4)
  - Incorrect dose administered by device [Unknown]
  - Device information output issue [Unknown]
  - Device delivery system issue [Unknown]
  - Device use error [Unknown]

NARRATIVE: CASE EVENT DATE: 20250702
